FAERS Safety Report 11234807 (Version 1)
Quarter: 2015Q3

REPORT INFORMATION
  Report Type: Spontaneous
  Country: US (occurrence: US)
  Receive Date: 20150702
  Receipt Date: 20150702
  Transmission Date: 20151125
  Serious: Yes (Hospitalization, Other)
  Sender: FDA-Public Use
  Company Number: US-GLAXOSMITHKLINE INC.-US2015GSK091130

PATIENT
  Sex: Male
  Weight: 82.54 kg

DRUGS (8)
  1. ZOLPIDEM TARTRATE. [Concomitant]
     Active Substance: ZOLPIDEM TARTRATE
  2. AMLODIPINE BESYLATE. [Concomitant]
     Active Substance: AMLODIPINE BESYLATE
  3. MIRTAZAPINE. [Concomitant]
     Active Substance: MIRTAZAPINE
  4. VOTRIENT [Suspect]
     Active Substance: PAZOPANIB HYDROCHLORIDE
     Indication: PRODUCT USED FOR UNKNOWN INDICATION
     Dosage: 800 MG, 1D
     Route: 048
     Dates: start: 201504
  5. CRESTOR [Concomitant]
     Active Substance: ROSUVASTATIN CALCIUM
  6. METFORMIN HCL ER [Concomitant]
     Active Substance: METFORMIN HYDROCHLORIDE
  7. LEVEMIR [Concomitant]
     Active Substance: INSULIN DETEMIR
  8. GRANISETRON HYDROCHLORIDE. [Concomitant]
     Active Substance: GRANISETRON HYDROCHLORIDE

REACTIONS (6)
  - Nausea [Unknown]
  - Decreased appetite [Unknown]
  - Hypertension [Unknown]
  - Weight decreased [Unknown]
  - Internal haemorrhage [Unknown]
  - Fatigue [Unknown]
